FAERS Safety Report 20231796 (Version 7)
Quarter: 2022Q4

REPORT INFORMATION
  Report Type: Report from Study
  Country: US (occurrence: US)
  Receive Date: 20211227
  Receipt Date: 20221103
  Transmission Date: 20230113
  Serious: No
  Sender: FDA-Public Use
  Company Number: US-NOVARTISTESTPH-NVSC2021US295201

PATIENT
  Sex: Male

DRUGS (1)
  1. KESIMPTA [Suspect]
     Active Substance: OFATUMUMAB
     Indication: Multiple sclerosis
     Dosage: UNK
     Route: 065

REACTIONS (9)
  - Tinea cruris [Unknown]
  - Confusional state [Unknown]
  - Memory impairment [Unknown]
  - Disturbance in attention [Unknown]
  - Thinking abnormal [Unknown]
  - Gait disturbance [Unknown]
  - Hormone level abnormal [Unknown]
  - Mobility decreased [Recovering/Resolving]
  - Visual impairment [Recovering/Resolving]
